FAERS Safety Report 4528796-9 (Version None)
Quarter: 2004Q4

REPORT INFORMATION
  Report Type: 
  Country: None (occurrence: None)
  Receive Date: 20041214
  Receipt Date: 20041119
  Transmission Date: 20050328
  Serious: Yes (Hospitalization)
  Sender: FDA-Public Use
  Company Number: BRO-007856

PATIENT
  Age: 71 Year
  Sex: Female

DRUGS (5)
  1. IOPAMIDOL-300 [Suspect]
     Indication: COMPUTERISED TOMOGRAM
     Dosage: 100 ML IV
     Route: 042
     Dates: start: 20041008, end: 20041008
  2. IOPAMIDOL-300 [Suspect]
     Indication: HAEMANGIOMA OF LIVER
     Dosage: 100 ML IV
     Route: 042
     Dates: start: 20041008, end: 20041008
  3. ADALAT CC [Concomitant]
  4. FAMOTIDINE [Concomitant]
  5. NELBON (NITRAZEPAM) [Concomitant]

REACTIONS (15)
  - ARTERIOSPASM CORONARY [None]
  - BLOOD PRESSURE DECREASED [None]
  - BRADYCARDIA [None]
  - CONTRAST MEDIA REACTION [None]
  - DEPRESSED LEVEL OF CONSCIOUSNESS [None]
  - DRUG HYPERSENSITIVITY [None]
  - ELECTROCARDIOGRAM ST SEGMENT ELEVATION [None]
  - FEELING ABNORMAL [None]
  - HAEMANGIOMA OF LIVER [None]
  - HYPOPNOEA [None]
  - MYOCARDIAL INFARCTION [None]
  - NAUSEA [None]
  - RESPIRATORY DISORDER [None]
  - STRIDOR [None]
  - THERAPY NON-RESPONDER [None]
